FAERS Safety Report 6678255-2 (Version None)
Quarter: 2010Q2

REPORT INFORMATION
  Report Type: 
  Country: None (occurrence: None)
  Receive Date: 20100408
  Receipt Date: 20100408
  Transmission Date: 20101027
  Serious: Yes (Other)
  Sender: FDA-Public Use
  Company Number: None

PATIENT
  Age: 44 Year
  Sex: Male
  Weight: 81.6475 kg

DRUGS (2)
  1. LAMOTRIGINE [Suspect]
     Indication: EPILEPSY
     Dosage: 300MG 2X DAY
     Dates: start: 20091201, end: 20100407
  2. LAMOTRIGINE THE GENERIC OF LAMICTAL [Concomitant]

REACTIONS (1)
  - CONVULSION [None]
